FAERS Safety Report 24954842 (Version 1)
Quarter: 2025Q1

REPORT INFORMATION
  Report Type: Spontaneous
  Country: DE (occurrence: DE)
  Receive Date: 20250211
  Receipt Date: 20250211
  Transmission Date: 20250409
  Serious: Yes (Other)
  Sender: ALMUS
  Company Number: DE-ALM-HQ-DE-2022-1184

PATIENT
  Age: 82 Year
  Sex: Male

DRUGS (1)
  1. KLISYRI [Suspect]
     Active Substance: TIRBANIBULIN

REACTIONS (2)
  - Squamous cell carcinoma [Not Recovered/Not Resolved]
  - Therapeutic product effect decreased [Not Recovered/Not Resolved]
